FAERS Safety Report 15066889 (Version 4)
Quarter: 2018Q3

REPORT INFORMATION
  Report Type: Spontaneous
  Country: JP (occurrence: JP)
  Receive Date: 20180626
  Receipt Date: 20180706
  Transmission Date: 20181010
  Serious: Yes (Other)
  Sender: FDA-Public Use
  Company Number: JP-PFIZER INC-2018256270

PATIENT
  Age: 13 Year
  Sex: Female

DRUGS (3)
  1. CLINDAMYCIN HCL [Suspect]
     Active Substance: CLINDAMYCIN HYDROCHLORIDE
     Indication: PSEUDOMONAL SEPSIS
     Dosage: UNK
  2. MEROPENEM. [Suspect]
     Active Substance: MEROPENEM
     Indication: PSEUDOMONAL SEPSIS
     Dosage: UNK
  3. CEFOZOPRAN HCL [Suspect]
     Active Substance: CEFOZOPRAN HYDROCHLORIDE
     Indication: PSEUDOMONAL SEPSIS
     Dosage: UNK

REACTIONS (2)
  - Drug ineffective [Unknown]
  - Cardiac failure [None]
